FAERS Safety Report 17641064 (Version 4)
Quarter: 2020Q2

REPORT INFORMATION
  Report Type: Report from Study
  Country: US (occurrence: US)
  Receive Date: 20200408
  Receipt Date: 20200514
  Transmission Date: 20200713
  Serious: Yes (Life-Threatening, Hospitalization)
  Sender: FDA-Public Use
  Company Number: US-SA-2020SA085620

PATIENT
  Age: 72 Year
  Sex: Male

DRUGS (31)
  1. ASPIRIN [ACETYLSALICYLIC ACID] [Concomitant]
     Active Substance: ASPIRIN
     Dosage: 650 MG, PRN (AS NECESSARY)
  2. ASPIRIN [ACETYLSALICYLIC ACID] [Concomitant]
     Active Substance: ASPIRIN
     Dosage: 325 MG, Q6H
  3. ACETAMINOPHEN. [Concomitant]
     Active Substance: ACETAMINOPHEN
     Dosage: 625 MG, Q6H
  4. FUROSEMIDE. [Concomitant]
     Active Substance: FUROSEMIDE
     Indication: CARDIAC FAILURE CONGESTIVE
     Dosage: 40 MG, ONCE 1X
     Dates: start: 20200322, end: 20200407
  5. FENTANYL. [Concomitant]
     Active Substance: FENTANYL
     Dosage: 2 G, INTERMITTENT
  6. MIDAZOLAM. [Concomitant]
     Active Substance: MIDAZOLAM
     Indication: SEDATION
     Dosage: 100 MG; CONTINOUS INFUSION
     Route: 041
     Dates: start: 20200324, end: 20200326
  7. ASPIRIN [ACETYLSALICYLIC ACID] [Concomitant]
     Active Substance: ASPIRIN
     Indication: CORONARY ARTERY DISEASE
     Dosage: 81 MG, QD
     Route: 048
     Dates: start: 20200316
  8. HYDROXYCHLOROQUINE [Concomitant]
     Active Substance: HYDROXYCHLOROQUINE
     Indication: CORONAVIRUS INFECTION
     Dosage: 200 MG, TID
     Route: 048
     Dates: start: 20200319, end: 20200323
  9. TICAGRELOR. [Concomitant]
     Active Substance: TICAGRELOR
     Indication: CORONARY ARTERY DISEASE
     Dosage: 90 MG, BID
     Dates: start: 20200316, end: 20200409
  10. LABETALOL [Concomitant]
     Active Substance: LABETALOL\LABETALOL HYDROCHLORIDE
     Indication: HYPERTENSION
     Dosage: 100 MG, TID
     Dates: start: 20200329, end: 20200413
  11. ASPIRIN [ACETYLSALICYLIC ACID] [Concomitant]
     Active Substance: ASPIRIN
     Dosage: 81 MG, QD
  12. CHOLECALCIFEROL [Concomitant]
     Active Substance: CHOLECALCIFEROL
     Indication: COVID-19
     Dosage: 2000 UNITS QD
     Dates: start: 20200326
  13. ACETAMINOPHEN. [Concomitant]
     Active Substance: ACETAMINOPHEN
     Indication: PYREXIA
     Dosage: 200 MG, BID
  14. ACETAMINOPHEN. [Concomitant]
     Active Substance: ACETAMINOPHEN
     Dosage: 650 MG, AS NECESSARY
  15. MAGNESIUM SULFAT [Concomitant]
     Active Substance: MAGNESIUM SULFATE
     Indication: PRODUCT USED FOR UNKNOWN INDICATION
     Dosage: 2 G; INTERMITTENT
     Dates: start: 20200322, end: 20200322
  16. ASCORBIC ACID. [Concomitant]
     Active Substance: ASCORBIC ACID
     Dosage: 500 MG, COMPLETE 5 DOSES
  17. FAMOTIDINE. [Concomitant]
     Active Substance: FAMOTIDINE
     Dosage: 200 MG, INTERMITTENT
  18. PIPERACILLIN TAZOBACTAM PA [Concomitant]
     Active Substance: PIPERACILLIN SODIUM\TAZOBACTAM SODIUM
     Indication: EVIDENCE BASED TREATMENT
     Dosage: 3375 MG, 1X
     Dates: start: 20200412, end: 20200412
  19. FENTANYL. [Concomitant]
     Active Substance: FENTANYL
     Indication: SEDATION
     Dosage: 2500 UG; CONTINUOUS INFUSION
     Route: 041
     Dates: start: 20200319, end: 20200331
  20. PROPOFOL. [Concomitant]
     Active Substance: PROPOFOL
     Indication: SEDATION
     Dosage: 1000 MG; CONTINUOUS INFUSION
     Route: 041
     Dates: start: 20200319, end: 20200325
  21. ASCORBIC ACID. [Concomitant]
     Active Substance: ASCORBIC ACID
     Indication: CORONAVIRUS INFECTION
     Dosage: 2000 MG; CONTINUOUS INFUSION
     Route: 041
     Dates: start: 20200319, end: 20200322
  22. AZITHROMYCIN ANHYDROUS. [Concomitant]
     Active Substance: AZITHROMYCIN ANHYDROUS
     Indication: ANTIBIOTIC THERAPY
     Dosage: 500 MG; COMPLETE 5 DOSES
     Dates: start: 20200320, end: 20200323
  23. FAMOTIDINE. [Concomitant]
     Active Substance: FAMOTIDINE
     Indication: PRODUCT USED FOR UNKNOWN INDICATION
     Dosage: 20 MG, BID
     Dates: start: 20200320, end: 20200404
  24. POTASSIUM PHOSPHATE [POTASSIUM PHOSPHATE DIBASIC] [Concomitant]
     Indication: COVID-19
     Dosage: 15 MILLIMOLES IN NACL 0.9% 250 ML
     Dates: start: 20200316, end: 20200326
  25. VANCOMYCIN [Concomitant]
     Active Substance: VANCOMYCIN
     Indication: EVIDENCE BASED TREATMENT
     Dosage: 1000 MG, ORDER #1 -STAT DOSEORDER #2 -Q12 HOURS
     Dates: start: 20200412, end: 20200416
  26. SARILUMAB [Suspect]
     Active Substance: SARILUMAB
     Indication: CORONAVIRUS INFECTION
     Dosage: 200 MG, SINGLE
     Route: 042
     Dates: start: 20200321, end: 20200321
  27. ACETAMINOPHEN. [Concomitant]
     Active Substance: ACETAMINOPHEN
     Indication: PAIN
     Dosage: 650 MG, QID
     Route: 048
     Dates: start: 20200321
  28. HEPARIN [Concomitant]
     Active Substance: HEPARIN SODIUM
     Indication: DEEP VEIN THROMBOSIS
     Dosage: 5000 U, Q8H
     Dates: start: 20200316, end: 20200407
  29. LEVOPHED [Concomitant]
     Active Substance: NOREPINEPHRINE BITARTRATE
     Indication: BLOOD PRESSURE MANAGEMENT
     Dosage: 16 MG; CONTINUOUS INFUSION
     Route: 041
     Dates: start: 20200319, end: 20200322
  30. THIAMINE. [Concomitant]
     Active Substance: THIAMINE
     Indication: CORONAVIRUS INFECTION
     Dosage: 200 MG; INTERMITTENT
     Dates: start: 20200319, end: 20200323
  31. NOREPINEPHRINE. [Concomitant]
     Active Substance: NOREPINEPHRINE
     Indication: BLOOD PRESSURE MEASUREMENT
     Dosage: 8 MG, IN NACL0.9% 250ML, INFUSEAT 7.65ML/HR
     Dates: start: 20200412, end: 20200419

REACTIONS (2)
  - Transaminases increased [Recovered/Resolved]
  - Respiratory failure [Unknown]

NARRATIVE: CASE EVENT DATE: 20200324
